FAERS Safety Report 18023436 (Version 1)
Quarter: 2020Q3

REPORT INFORMATION
  Report Type: Spontaneous
  Country: US (occurrence: US)
  Receive Date: 20200715
  Receipt Date: 20200715
  Transmission Date: 20201103
  Serious: Yes (Hospitalization)
  Sender: FDA-Public Use
  Company Number: US-LEADINGPHARMA-US-2020LEALIT00108

PATIENT
  Age: 52 Year
  Sex: Female

DRUGS (9)
  1. NIFEDIPINE CAPSULES USP [Suspect]
     Active Substance: NIFEDIPINE
     Indication: HYPERTENSION
     Dosage: DOSE INCREASED FOR UNCONTROLLED HYPERTENSION
     Route: 048
  2. CALCIUM CHLORIDE. [Interacting]
     Active Substance: CALCIUM CHLORIDE
     Indication: PRODUCT USED FOR UNKNOWN INDICATION
     Route: 065
  3. GLUCAGON. [Interacting]
     Active Substance: GLUCAGON
     Indication: HYPOTENSION
     Route: 065
  4. EPINEPHRINE. [Interacting]
     Active Substance: EPINEPHRINE
     Indication: BRADYCARDIA
  5. METOPROLOL. [Suspect]
     Active Substance: METOPROLOL
     Indication: HYPERTENSIVE CRISIS
     Route: 048
  6. NIFEDIPINE CAPSULES USP [Suspect]
     Active Substance: NIFEDIPINE
     Indication: HYPERTENSIVE CRISIS
  7. GLUCAGON. [Interacting]
     Active Substance: GLUCAGON
     Indication: BRADYCARDIA
  8. EPINEPHRINE. [Interacting]
     Active Substance: EPINEPHRINE
     Indication: HYPOTENSION
     Route: 065
  9. LABETALOL [Suspect]
     Active Substance: LABETALOL\LABETALOL HYDROCHLORIDE
     Indication: HYPERTENSIVE CRISIS
     Route: 042

REACTIONS (2)
  - Cardiac arrest [Unknown]
  - BRASH syndrome [Recovered/Resolved]
